FAERS Safety Report 5669817-X (Version None)
Quarter: 2008Q1

REPORT INFORMATION
  Report Type: 
  Country: None (occurrence: None)
  Receive Date: 20080317
  Receipt Date: 20080307
  Transmission Date: 20080703
  Serious: Yes (Other)
  Sender: FDA-Public Use
  Company Number: CH-PFIZER INC-2008022975

PATIENT
  Age: 27 Year
  Sex: Female

DRUGS (6)
  1. XANAX [Suspect]
     Indication: DEPRESSION
     Route: 048
  2. SORTIS [Suspect]
     Indication: HYPERLIPIDAEMIA
     Route: 048
     Dates: end: 20070123
  3. BELOC ZOK [Suspect]
     Indication: ESSENTIAL HYPERTENSION
  4. SEROQUEL [Suspect]
     Indication: SCHIZOPHRENIA
     Route: 048
  5. EFFEXOR [Suspect]
     Indication: DEPRESSION
     Route: 048
  6. ELTROXIN [Concomitant]
     Route: 048

REACTIONS (2)
  - ABORTION SPONTANEOUS [None]
  - DRUG EXPOSURE DURING PREGNANCY [None]
